FAERS Safety Report 14715878 (Version 1)
Quarter: 2018Q2

REPORT INFORMATION
  Report Type: Spontaneous
  Country: TR (occurrence: TR)
  Receive Date: 20180404
  Receipt Date: 20180404
  Transmission Date: 20180711
  Serious: Yes (Other)
  Sender: FDA-Public Use
  Company Number: TR-BAYER-2018-064004

PATIENT
  Age: 45 Year
  Sex: Male

DRUGS (3)
  1. ACETYLSALICYLIC ACID({=100 MG) [Suspect]
     Active Substance: ASPIRIN
     Dosage: 300 MG, UNK
  2. CLOPIDOGREL [Suspect]
     Active Substance: CLOPIDOGREL BISULFATE
     Dosage: 300 MG, UNK
  3. HEPARIN [Suspect]
     Active Substance: HEPARIN SODIUM
     Dosage: 100 IU/KG, UNK
     Route: 042

REACTIONS (1)
  - Thrombocytopenia [None]
